FAERS Safety Report 9005172 (Version 1)
Quarter: 2013Q1

REPORT INFORMATION
  Report Type: Spontaneous
  Country: US (occurrence: US)
  Receive Date: 20130109
  Receipt Date: 20130109
  Transmission Date: 20140127
  Serious: Yes (Death)
  Sender: FDA-Public Use
  Company Number: US-COVIDIEN/TYCO HEALTHCARE/MALLINCKRODT-T201300010

PATIENT
  Age: 58 Year
  Sex: Male

DRUGS (8)
  1. TEMAZEPAM [Suspect]
     Dosage: UNK
  2. METAXALONE [Suspect]
     Dosage: UNK
  3. CITALOPRAM [Suspect]
     Dosage: UNK
  4. ZOLPIDEM [Suspect]
     Dosage: UNK
  5. CARISOPRODOL [Suspect]
     Dosage: UNK
  6. HYDROCODONE [Suspect]
     Dosage: UNK
  7. PROMETHAZINE [Suspect]
     Dosage: UNK
  8. DIPHENHYDRAMINE [Suspect]
     Dosage: UNK

REACTIONS (2)
  - Completed suicide [Fatal]
  - Overdose [Fatal]
